FAERS Safety Report 10149158 (Version 3)
Quarter: 2015Q4

REPORT INFORMATION
  Report Type: Spontaneous
  Country: US (occurrence: US)
  Receive Date: 20140502
  Receipt Date: 20151126
  Transmission Date: 20160304
  Serious: Yes (Hospitalization, Congenital Anomaly, Other)
  Sender: FDA-Public Use
  Company Number: US-JNJFOC-20140417438

PATIENT
  Sex: Male

DRUGS (3)
  1. TOPAMAX [Suspect]
     Active Substance: TOPIRAMATE
     Indication: PRODUCT USED FOR UNKNOWN INDICATION
     Route: 064
  2. ORTHO TRI CYCLEN [Suspect]
     Active Substance: ETHINYL ESTRADIOL\NORGESTIMATE
     Indication: ORAL CONTRACEPTION
     Dosage: MOTHER^S EXPOSURE
     Route: 064
  3. XANAX [Suspect]
     Active Substance: ALPRAZOLAM
     Indication: PRODUCT USED FOR UNKNOWN INDICATION
     Route: 064

REACTIONS (15)
  - Cardiac failure congestive [Unknown]
  - Atrial septal defect [Not Recovered/Not Resolved]
  - Gastrooesophageal reflux disease [Unknown]
  - Dyspepsia [Unknown]
  - Maternal drugs affecting foetus [None]
  - Foetal exposure during pregnancy [Unknown]
  - Ventricular septal defect [Unknown]
  - Premature baby [Not Recovered/Not Resolved]
  - Speech disorder [Unknown]
  - Tricuspid valve incompetence [Not Recovered/Not Resolved]
  - Developmental delay [Unknown]
  - Amblyopia [Unknown]
  - Pulmonary valve stenosis [Unknown]
  - Aorticopulmonary septal defect [Unknown]
  - Insomnia [Unknown]
